FAERS Safety Report 14757807 (Version 1)
Quarter: 2018Q2

REPORT INFORMATION
  Report Type: Spontaneous
  Country: JP (occurrence: JP)
  Receive Date: 20180413
  Receipt Date: 20180413
  Transmission Date: 20180711
  Serious: Yes (Other)
  Sender: FDA-Public Use
  Company Number: PHJP2018JP008355

PATIENT
  Age: 79 Year
  Sex: Male

DRUGS (1)
  1. NEORAL [Suspect]
     Active Substance: CYCLOSPORINE
     Indication: CORNEAL GRAFT REJECTION
     Dosage: UNK
     Route: 048

REACTIONS (3)
  - Sciatica [Unknown]
  - Back pain [Unknown]
  - Concomitant disease aggravated [Unknown]
